FAERS Safety Report 5639341-9 (Version None)
Quarter: 2008Q1

REPORT INFORMATION
  Report Type: 
  Country: None (occurrence: None)
  Receive Date: 20080222
  Receipt Date: 20080212
  Transmission Date: 20080703
  Serious: Yes (Hospitalization, Other)
  Sender: FDA-Public Use
  Company Number: 6040806

PATIENT
  Age: 82 Year
  Sex: Male

DRUGS (10)
  1. BISOPROLOL FUMARATE [Suspect]
     Indication: HYPERTENSION
     Dosage: 10 MG (10 MG, 1D) ORAL
     Route: 048
  2. ZOLOFT [Suspect]
     Indication: DEPRESSION
     Dosage: 1 DOSAGE FORMS (1 DOSAGE FORMS, 1D) ORAL
     Route: 048
     Dates: end: 20070924
  3. OXAZEPAM [Suspect]
     Indication: ANXIETY
     Dosage: 0,5 DOSAGE FORMS (0,5 DOSAGE FORMS, 1 IN 1 D) ORAL
     Route: 048
  4. ALPRAZOLAM [Suspect]
     Indication: ANXIETY
     Dosage: ORAL
     Route: 048
     Dates: end: 20070917
  5. FELODIPINE [Suspect]
     Indication: HYPERTENSION
     Dosage: 1 DOSAGE FORMS (1 DOSAGE FORMS, 1 D) ORAL
     Route: 048
     Dates: end: 20070917
  6. IKOREL                   (NICORANDIL) [Suspect]
     Indication: ANGINA PECTORIS
     Dosage: 20 MG (20 MG, 1 D) ORAL
     Route: 048
  7. PLAVIX [Concomitant]
  8. PIASCLEDINE                     (PIAS) [Concomitant]
     Dosage: CAP
  9. PANTOPRAZOLE SODIUM [Concomitant]
     Dosage: TAB
  10. DESLORATADINE [Concomitant]

REACTIONS (7)
  - EXTRADURAL HAEMATOMA [None]
  - FALL [None]
  - HYPONATRAEMIA [None]
  - MALAISE [None]
  - SUBDURAL HAEMATOMA [None]
  - SYNCOPE [None]
  - WOUND [None]
